FAERS Safety Report 4290163-3 (Version None)
Quarter: 2004Q1

REPORT INFORMATION
  Report Type: 
  Country: None (occurrence: None)
  Receive Date: 20040209
  Receipt Date: 20040202
  Transmission Date: 20041129
  Serious: Yes (Death)
  Sender: FDA-Public Use
  Company Number: US-JNJFOC-20040201033

PATIENT
  Age: 58 Year
  Sex: Female
  Weight: 137.4399 kg

DRUGS (14)
  1. CISAPRIDE (CISAPRIDE) TABLETS [Suspect]
     Indication: GASTROOESOPHAGEAL REFLUX DISEASE
     Dosage: 80 MG , ORAL
     Route: 048
     Dates: start: 20001125, end: 20040127
  2. SOMA [Concomitant]
  3. SENNA [Concomitant]
  4. STOOL SOFTNER (DOCUSATE SODIUM) [Concomitant]
  5. MULTI-VITAMIN (MULTIVITAMINS) [Concomitant]
  6. VITAMIN E [Concomitant]
  7. GLUCOSAMINE [Concomitant]
  8. ROBITUSSIN (GUAIFENESIN) [Concomitant]
  9. ALBUTEROL [Concomitant]
  10. KADIAN [Concomitant]
  11. PERCOCET [Concomitant]
  12. ACTIFED [Concomitant]
  13. MIRALAX [Concomitant]
  14. NEXIUM [Concomitant]

REACTIONS (2)
  - CELLULITIS [None]
  - THROMBOSIS [None]
